FAERS Safety Report 6426158-0 (Version None)
Quarter: 2009Q4

REPORT INFORMATION
  Report Type: 
  Country: None (occurrence: None)
  Receive Date: 20091104
  Receipt Date: 20091022
  Transmission Date: 20100525
  Serious: Yes (Life-Threatening, Hospitalization, Other)
  Sender: FDA-Public Use
  Company Number: US-ELI_LILLY_AND_COMPANY-US200907006191

PATIENT
  Age: 86 Year
  Sex: Female

DRUGS (4)
  1. FORTEO [Suspect]
     Indication: OSTEOPOROSIS
     Dosage: 20 UG, DAILY (1/D)
     Route: 058
     Dates: start: 20090508, end: 20090624
  2. ROXICODONE [Concomitant]
     Indication: PAIN
     Dosage: 15 MG, UNK
  3. ARICEPT [Concomitant]
     Indication: MEMORY IMPAIRMENT
  4. NEXIUM [Concomitant]
     Indication: REFLUX OESOPHAGITIS
     Dosage: 40 MG, UNK

REACTIONS (3)
  - METASTASES TO BONE [None]
  - PATHOLOGICAL FRACTURE [None]
  - RENAL CELL CARCINOMA RECURRENT [None]
